FAERS Safety Report 9799760 (Version 2)
Quarter: 2015Q3

REPORT INFORMATION
  Report Type: Spontaneous
  Country: US (occurrence: US)
  Receive Date: 20140106
  Receipt Date: 20150807
  Transmission Date: 20151125
  Serious: Yes (Other)
  Sender: FDA-Public Use
  Company Number: US-GILEAD-2010-0034303

PATIENT
  Age: 72 Year
  Sex: Male

DRUGS (10)
  1. LETAIRIS [Suspect]
     Active Substance: AMBRISENTAN
     Indication: PULMONARY HYPERTENSION
     Route: 048
     Dates: start: 20101015, end: 20101205
  2. KLOR-CON [Concomitant]
     Active Substance: POTASSIUM CHLORIDE
  3. METOPROLOL [Concomitant]
     Active Substance: METOPROLOL
  4. BUMETANIDE. [Concomitant]
     Active Substance: BUMETANIDE
  5. DIGOXIN. [Concomitant]
     Active Substance: DIGOXIN
  6. WARFARIN [Concomitant]
     Active Substance: WARFARIN
  7. ALLOPURINOL. [Concomitant]
     Active Substance: ALLOPURINOL
  8. LOSARTAN. [Concomitant]
     Active Substance: LOSARTAN
  9. MINOXIDIL. [Concomitant]
     Active Substance: MINOXIDIL
  10. SPIRIVA [Concomitant]
     Active Substance: TIOTROPIUM BROMIDE MONOHYDRATE

REACTIONS (2)
  - Weight increased [Unknown]
  - Swelling [Unknown]
